FAERS Safety Report 6715333-3 (Version None)
Quarter: 2010Q2

REPORT INFORMATION
  Report Type: 
  Country: None (occurrence: None)
  Receive Date: 20100507
  Receipt Date: 20100427
  Transmission Date: 20101027
  Serious: Yes (Disabling)
  Sender: FDA-Public Use
  Company Number: JP-BRISTOL-MYERS SQUIBB COMPANY-14696041

PATIENT
  Age: 59 Year
  Sex: Female
  Weight: 52 kg

DRUGS (10)
  1. ERBITUX [Suspect]
     Indication: COLON CANCER
     Dosage: 1ST INF ON 14JAN09;15TH INF ON 21APR09(360MG);16TH + MOST RECENT INF ON 28APR09
     Route: 042
     Dates: start: 20090114, end: 20090428
  2. IRINOTECAN HYDROCHLORIDE [Suspect]
     Indication: COLON CANCER
     Dosage: 1ST INF ON 14JAN09;7TH AND MOST RECENT INF ON 21APR09
     Route: 042
     Dates: start: 20090114
  3. RESTAMIN [Concomitant]
     Indication: PREMEDICATION
     Dosage: 7.143MG;FORM TABS
     Route: 048
     Dates: start: 20090114, end: 20090428
  4. DEXAMETHASONE [Concomitant]
     Indication: PREMEDICATION
     Route: 042
     Dates: start: 20090114
  5. DEXAMETHASONE [Concomitant]
     Indication: ANTIEMETIC SUPPORTIVE CARE
     Route: 042
     Dates: start: 20090114
  6. GRANISETRON [Concomitant]
     Indication: PREMEDICATION
     Route: 042
     Dates: start: 20090114
  7. GRANISETRON [Concomitant]
     Indication: ANTIEMETIC SUPPORTIVE CARE
     Route: 042
     Dates: start: 20090114
  8. GASRICK D [Concomitant]
     Indication: GASTRITIS
     Dosage: TABS
     Route: 048
     Dates: start: 20080709
  9. NORVASC [Concomitant]
     Indication: HYPERTENSION
     Dosage: TABS
     Route: 048
     Dates: start: 20080917
  10. TANATRIL [Concomitant]
     Indication: HYPERTENSION
     Dosage: TABS
     Route: 048
     Dates: start: 20081022

REACTIONS (1)
  - DECREASED APPETITE [None]
